FAERS Safety Report 18059726 (Version 1)
Quarter: 2020Q3

REPORT INFORMATION
  Report Type: Spontaneous
  Country: US (occurrence: US)
  Receive Date: 20200723
  Receipt Date: 20200723
  Transmission Date: 20201103
  Serious: No
  Sender: FDA-Public Use
  Company Number: US-RECKITT BENCKISER HEALTHCARE INT LIMITED-RB-80334-2020

PATIENT
  Age: 52 Year
  Sex: Female

DRUGS (2)
  1. MUCINEX DM MAXIMUM STRENGTH [Suspect]
     Active Substance: DEXTROMETHORPHAN HYDROBROMIDE\GUAIFENESIN
     Indication: SECRETION DISCHARGE
     Dosage: 1200 MILLIGRAM, TOOK 1 TABLET AT 2 PM AND ANOTHER ABOUT 4 HOURS LATER, AFTER GOING TO DINNER
     Route: 065
     Dates: start: 20191202
  2. BUPROPION. [Concomitant]
     Active Substance: BUPROPION
     Indication: PRODUCT USED FOR UNKNOWN INDICATION
     Dosage: UNK
     Route: 065

REACTIONS (8)
  - Agitation [Recovered/Resolved]
  - Irritability [Recovered/Resolved]
  - Headache [Recovered/Resolved]
  - Vomiting [Recovered/Resolved]
  - Muscle tightness [Recovered/Resolved]
  - Bruxism [Recovered/Resolved]
  - Incorrect product administration duration [Recovered/Resolved]
  - Nausea [Recovered/Resolved]
